FAERS Safety Report 8181642-7 (Version None)
Quarter: 2012Q1

REPORT INFORMATION
  Report Type: 
  Country: None (occurrence: None)
  Receive Date: 20120302
  Receipt Date: 20120215
  Transmission Date: 20120608
  Serious: Yes (Hospitalization)
  Sender: FDA-Public Use
  Company Number: US-TEVA-2011004493

PATIENT
  Sex: Male
  Weight: 97 kg

DRUGS (9)
  1. TREANDA [Suspect]
     Route: 042
     Dates: start: 20110816, end: 20110817
  2. ACETYLSALICYLIC ACID SRT [Concomitant]
     Indication: MULTIPLE MYELOMA
     Dates: start: 20110607
  3. LENALIDOMIDE [Concomitant]
     Indication: MULTIPLE MYELOMA
     Dates: start: 20110607, end: 20110823
  4. METOPROLOL SUCCINATE [Concomitant]
     Indication: MULTIPLE MYELOMA
     Dates: start: 20110105
  5. TREANDA [Suspect]
     Indication: MULTIPLE MYELOMA
     Route: 042
     Dates: start: 20110607, end: 20110713
  6. DEXAMETHASONE [Concomitant]
     Indication: MULTIPLE MYELOMA
     Dates: start: 20110607
  7. GRANISETRON [Concomitant]
     Indication: MULTIPLE MYELOMA
     Dates: start: 20110607
  8. NEULASTA [Concomitant]
     Indication: MULTIPLE MYELOMA
     Dates: start: 20110819
  9. ZOLEDRONIC ACID [Concomitant]
     Indication: MULTIPLE MYELOMA
     Dates: start: 20110412

REACTIONS (1)
  - PNEUMONIA BACTERIAL [None]
